FAERS Safety Report 20638740 (Version 1)
Quarter: 2022Q1

REPORT INFORMATION
  Report Type: Spontaneous
  Country: GR (occurrence: GR)
  Receive Date: 20220325
  Receipt Date: 20220325
  Transmission Date: 20220424
  Serious: Yes (Hospitalization, Other)
  Sender: FDA-Public Use
  Company Number: GR-TEVA-2022-GR-2019125

PATIENT
  Age: 28 Year
  Sex: Female

DRUGS (1)
  1. COPAXONE [Suspect]
     Active Substance: GLATIRAMER ACETATE
     Indication: Multiple sclerosis
     Route: 058
     Dates: start: 202107

REACTIONS (4)
  - Swelling face [Recovered/Resolved]
  - Dizziness [Recovered/Resolved]
  - Lip swelling [Recovered/Resolved]
  - Enlarged uvula [Recovered/Resolved]

NARRATIVE: CASE EVENT DATE: 20220309
